FAERS Safety Report 9154446 (Version 6)
Quarter: 2013Q4

REPORT INFORMATION
  Report Type: Spontaneous
  Country: US (occurrence: US)
  Receive Date: 20130311
  Receipt Date: 20131108
  Transmission Date: 20140711
  Serious: Yes (Hospitalization, Disabling, Other)
  Sender: FDA-Public Use
  Company Number: US-009507513-1303USA003988

PATIENT
  Sex: Female
  Weight: 77.55 kg

DRUGS (10)
  1. FOSAMAX [Suspect]
     Indication: OSTEOPOROSIS
     Dosage: 10 MG, QD
     Route: 048
     Dates: start: 19990208
  2. FOSAMAX [Suspect]
     Dosage: UNK
     Route: 048
     Dates: start: 1998, end: 2010
  3. FOSAMAX [Suspect]
     Dosage: 70 MG, QW
     Route: 048
  4. FORTEO [Concomitant]
     Indication: OSTEOPOROSIS
     Dosage: 20 MG, QD
     Dates: start: 2007, end: 200812
  5. PROZAC [Concomitant]
     Indication: DEPRESSION
     Dosage: 20 MG, QD
  6. ZOLOFT [Concomitant]
     Indication: DEPRESSION
  7. PREMPRO [Concomitant]
     Indication: OSTEOPOROSIS
     Dosage: 0.625MG/2.5MG QD
     Dates: start: 20000223
  8. ESTROGENS (UNSPECIFIED) [Concomitant]
     Dosage: UNK
     Dates: start: 20000314
  9. EVISTA [Concomitant]
     Indication: OSTEOPOROSIS
     Dosage: 60 MG, QD
  10. CELEXA [Concomitant]
     Indication: DEPRESSION
     Dosage: 20 MG, QD

REACTIONS (95)
  - Femur fracture [Recovering/Resolving]
  - Intramedullary rod insertion [Unknown]
  - Haemorrhagic anaemia [Unknown]
  - Venous insufficiency [Unknown]
  - Cardiac murmur [Unknown]
  - Mitral valve incompetence [Unknown]
  - Femur fracture [Recovered/Resolved]
  - Open reduction of fracture [Unknown]
  - Urinary retention [Unknown]
  - Femoral neck fracture [Unknown]
  - Hip arthroplasty [Unknown]
  - Hip arthroplasty [Unknown]
  - Medical device removal [Unknown]
  - Fractured sacrum [Not Recovered/Not Resolved]
  - Femoral neck fracture [Unknown]
  - Femur fracture [Unknown]
  - Metastatic neoplasm [Unknown]
  - Humerus fracture [Unknown]
  - Femur fracture [Unknown]
  - Impaired healing [Unknown]
  - Impaired healing [Unknown]
  - Impaired healing [Unknown]
  - Low turnover osteopathy [Unknown]
  - Anxiety [Not Recovered/Not Resolved]
  - Periodontal operation [Unknown]
  - Depression [Not Recovered/Not Resolved]
  - Oral surgery [Unknown]
  - Lower limb fracture [Unknown]
  - Foot fracture [Unknown]
  - Body height decreased [Unknown]
  - Fractured sacrum [Unknown]
  - Scapula fracture [Unknown]
  - Fractured sacrum [Unknown]
  - Periodontal disease [Unknown]
  - Osteoporosis [Unknown]
  - Spinal compression fracture [Unknown]
  - Bone metabolism disorder [Unknown]
  - Fracture nonunion [Unknown]
  - Weight increased [Unknown]
  - Acute sinusitis [Unknown]
  - Dysuria [Unknown]
  - Rectal haemorrhage [Unknown]
  - Varicose vein [Unknown]
  - Endometrial disorder [Unknown]
  - Bursitis [Unknown]
  - Libido decreased [Unknown]
  - Tremor [Unknown]
  - Bruxism [Unknown]
  - Weight increased [Unknown]
  - Atrophic vulvovaginitis [Unknown]
  - Weight increased [Unknown]
  - Blood calcium increased [Unknown]
  - Fall [Unknown]
  - Haemoglobin decreased [Unknown]
  - Cataract [Unknown]
  - Antinuclear antibody positive [Unknown]
  - Osteoarthritis [Unknown]
  - Migraine [Unknown]
  - Uterine leiomyoma [Unknown]
  - Hiatus hernia [Unknown]
  - Acquired oesophageal web [Unknown]
  - Iron deficiency anaemia [Unknown]
  - Scapula fracture [Unknown]
  - Rib fracture [Unknown]
  - Scapula fracture [Unknown]
  - Scapula fracture [Unknown]
  - Lumbar vertebral fracture [Unknown]
  - Fractured sacrum [Unknown]
  - Rib fracture [Unknown]
  - Rib fracture [Unknown]
  - Rib fracture [Unknown]
  - Scapula fracture [Unknown]
  - Rotator cuff syndrome [Not Recovered/Not Resolved]
  - Fracture nonunion [Not Recovered/Not Resolved]
  - Scapula fracture [Not Recovered/Not Resolved]
  - Ankle fracture [Unknown]
  - Rib fracture [Unknown]
  - Costochondritis [Unknown]
  - Phlebitis [Unknown]
  - Lower limb fracture [Unknown]
  - Orthostatic hypotension [Unknown]
  - Fungal skin infection [Unknown]
  - Bronchospasm [Unknown]
  - Cervical dysplasia [Unknown]
  - Congenital musculoskeletal anomaly [Unknown]
  - Bone disorder [Unknown]
  - Hypercorticoidism [Unknown]
  - Pain in extremity [Unknown]
  - Back pain [Unknown]
  - Constipation [Unknown]
  - Drug ineffective [Unknown]
  - Drug ineffective [Unknown]
  - Gastrooesophageal reflux disease [Unknown]
  - Nausea [Unknown]
  - Back pain [Unknown]
